FAERS Safety Report 7117391-3 (Version None)
Quarter: 2010Q4

REPORT INFORMATION
  Report Type: 
  Country: None (occurrence: None)
  Receive Date: 20101122
  Receipt Date: 20101116
  Transmission Date: 20110411
  Serious: Yes (Other)
  Sender: FDA-Public Use
  Company Number: DE-PFIZER INC-2010104462

PATIENT
  Age: 72 Year
  Sex: Male
  Weight: 75 kg

DRUGS (4)
  1. LYRICA [Suspect]
     Indication: DEPRESSION
     Dosage: 50 MG, 3X/DAY
     Route: 048
     Dates: start: 20100518
  2. LYRICA [Suspect]
     Indication: ANXIETY DISORDER
  3. EQUILIBRIN ^AVENTIS PHARMA^ [Concomitant]
     Indication: DEPRESSION
     Dosage: UNK
     Route: 048
     Dates: start: 20100601
  4. EQUILIBRIN ^AVENTIS PHARMA^ [Concomitant]
     Indication: ANXIETY DISORDER

REACTIONS (8)
  - ATAXIA [None]
  - DIZZINESS [None]
  - FALL [None]
  - FATIGUE [None]
  - LISTLESS [None]
  - NAUSEA [None]
  - SOMNOLENCE [None]
  - THOUGHT BLOCKING [None]
